FAERS Safety Report 25444699 (Version 1)
Quarter: 2025Q2

REPORT INFORMATION
  Report Type: Spontaneous
  Country: NO (occurrence: NO)
  Receive Date: 20250617
  Receipt Date: 20250617
  Transmission Date: 20250716
  Serious: Yes (Other)
  Sender: ABBVIE
  Company Number: None

PATIENT
  Age: 20 Year
  Sex: Female
  Weight: 93 kg

DRUGS (4)
  1. ATOGEPANT [Suspect]
     Active Substance: ATOGEPANT
     Indication: Migraine
     Route: 048
     Dates: start: 20250301
  2. Melatonin Orifarm [Concomitant]
     Indication: Initial insomnia
     Dosage: 3 MG DAILY
     Route: 065
     Dates: start: 2020
  3. CETIRIZINE HYDROCHLORIDE [Concomitant]
     Active Substance: CETIRIZINE HYDROCHLORIDE
     Indication: Seasonal allergy
     Dosage: 10 MG DAILY
     Route: 065
     Dates: start: 2022
  4. DESOGESTREL [Concomitant]
     Active Substance: DESOGESTREL
     Indication: Dysmenorrhoea
     Route: 065
     Dates: start: 2021

REACTIONS (6)
  - Syncope [Recovered/Resolved]
  - Dizziness [Recovered/Resolved]
  - Head discomfort [Recovered/Resolved]
  - Tinnitus [Recovered/Resolved]
  - Visual impairment [Recovered/Resolved]
  - Pallor [Recovered/Resolved]

NARRATIVE: CASE EVENT DATE: 20250606
